FAERS Safety Report 18172882 (Version 2)
Quarter: 2020Q4

REPORT INFORMATION
  Report Type: Report from Study
  Country: US (occurrence: US)
  Receive Date: 20200819
  Receipt Date: 20201020
  Transmission Date: 20210113
  Serious: Yes (Hospitalization, Other)
  Sender: FDA-Public Use
  Company Number: US-BAUSCH-BL-2020-023366

PATIENT
  Age: 67 Year
  Sex: Female

DRUGS (1)
  1. XIFAXAN [Suspect]
     Active Substance: RIFAXIMIN
     Indication: HEPATIC ENCEPHALOPATHY
     Route: 048
     Dates: start: 20200704, end: 20200716

REACTIONS (4)
  - Inability to afford medication [Unknown]
  - Septic shock [Unknown]
  - Confusional state [Not Recovered/Not Resolved]
  - Ammonia increased [Unknown]

NARRATIVE: CASE EVENT DATE: 2020
